FAERS Safety Report 10184666 (Version 2)
Quarter: 2014Q3

REPORT INFORMATION
  Report Type: Spontaneous
  Country: CA (occurrence: None)
  Receive Date: 20140519
  Receipt Date: 20140703
  Transmission Date: 20150326
  Serious: Yes (Hospitalization, Other)
  Sender: FDA-Public Use
  Company Number: AXC-2013-000539

PATIENT
  Age: 16 Year
  Sex: Female

DRUGS (4)
  1. SIROLIMUS (SIROLIMUS) [Concomitant]
  2. TACROLIMUS (TACROLIMUS) [Concomitant]
     Active Substance: TACROLIMUS
  3. URSO [Suspect]
     Active Substance: URSODIOL
     Indication: CHOLESTASIS
     Route: 048
     Dates: start: 20130827
  4. CELLCEPT [Concomitant]
     Active Substance: MYCOPHENOLATE MOFETIL\MYCOPHENOLATE MOFETIL HYDROCHLORIDE

REACTIONS (4)
  - Stillbirth [None]
  - Pre-eclampsia [None]
  - Exposure during pregnancy [None]
  - Malaise [None]

NARRATIVE: CASE EVENT DATE: 2013
